FAERS Safety Report 7292802-1 (Version None)
Quarter: 2011Q1

REPORT INFORMATION
  Report Type: 
  Country: None (occurrence: None)
  Receive Date: 20110215
  Receipt Date: 20110202
  Transmission Date: 20110831
  Serious: Yes (Other)
  Sender: FDA-Public Use
  Company Number: US-ELI_LILLY_AND_COMPANY-US201012000323

PATIENT
  Sex: Male

DRUGS (22)
  1. ZOLOFT [Concomitant]
     Dosage: 50 MG, DAILY (1/D)
     Route: 048
  2. PREDNISONE [Concomitant]
     Dosage: 8 MG, DAILY (1/D)
     Route: 048
  3. XALATAN [Concomitant]
     Dosage: 0.005 %, EACH EVENING
  4. VITAMIN D [Concomitant]
     Indication: STEROID THERAPY
     Dosage: 1000 IU, DAILY (1/D)
  5. METFORMIN [Concomitant]
     Dosage: 1000 MG, DAILY (1/D)
  6. OXYCODONE [Concomitant]
     Dosage: 30 MG, EVERY 6 HRS
  7. NEURONTIN [Concomitant]
     Dosage: 200 MG, EACH MORNING
  8. ANTIHYPERTENSIVES [Concomitant]
     Indication: HYPERTENSION
  9. PREDNISONE [Concomitant]
     Dosage: 5 MG, DAILY (1/D)
     Route: 048
  10. CALCIUM D /00944201/ [Concomitant]
     Dosage: 1 D/F, 2/D
  11. FORTEO [Suspect]
     Indication: OSTEOPOROSIS
     Dosage: 20 UG, DAILY (1/D)
     Route: 058
  12. OXYCONTIN [Concomitant]
     Dosage: 60 MG, OTHER
  13. PREDNISONE [Concomitant]
     Dosage: 7 MG, DAILY (1/D)
     Route: 048
  14. PREDNISONE [Concomitant]
     Dosage: 2 MG, DAILY (1/D)
     Route: 048
  15. PREDNISONE [Concomitant]
     Dosage: 3 MG, DAILY (1/D)
     Route: 048
  16. SIMVASTATIN [Concomitant]
     Dosage: 10 MG, EACH EVENING
  17. TIZANIDINE [Concomitant]
     Dosage: 2 MG, 3/D
     Route: 048
  18. KLONOPIN [Concomitant]
     Dosage: 0.5 MG, 3/D
     Route: 048
  19. NEURONTIN [Concomitant]
     Dosage: 100 MG, EACH EVENING
  20. NEXIUM [Concomitant]
     Dosage: 40 MG, DAILY (1/D)
     Route: 048
  21. TIZANIDINE [Concomitant]
     Dosage: 4 MG, EACH EVENING
     Route: 048
  22. NEURONTIN [Concomitant]
     Dosage: 200 MG, DAILY (1/D) AT NOON

REACTIONS (5)
  - MALAISE [None]
  - GENERAL PHYSICAL HEALTH DETERIORATION [None]
  - MYOPATHY [None]
  - MUSCLE DISORDER [None]
  - ABASIA [None]
